FAERS Safety Report 12871612 (Version 2)
Quarter: 2017Q3

REPORT INFORMATION
  Report Type: Spontaneous
  Country: US (occurrence: US)
  Receive Date: 20161021
  Receipt Date: 20170804
  Transmission Date: 20171127
  Serious: Yes (Other)
  Sender: FDA-Public Use
  Company Number: US-NAPPMUNDI-USA-2016-0130453

PATIENT
  Sex: Male
  Weight: 90.7 kg

DRUGS (1)
  1. OXYCONTIN [Suspect]
     Active Substance: OXYCODONE HYDROCHLORIDE
     Indication: PROCEDURAL PAIN
     Dosage: 5 MG, UNK
     Route: 048
     Dates: start: 20070815

REACTIONS (4)
  - Drug abuse [Unknown]
  - Prognathism [Unknown]
  - Drug dependence [Unknown]
  - Road traffic accident [Unknown]
